FAERS Safety Report 8816295 (Version 1)
Quarter: 2012Q4

REPORT INFORMATION
  Report Type: Spontaneous
  Country: US (occurrence: None)
  Receive Date: 20120928
  Receipt Date: 20120928
  Transmission Date: 20130627
  Serious: Yes (Other)
  Sender: FDA-Public Use
  Company Number: None

PATIENT
  Age: 65 Year
  Sex: Female
  Weight: 54 kg

DRUGS (4)
  1. RETINOL [Suspect]
     Indication: SKIN DISORDER
     Dosage: less than pea, 1xday,topical
     Route: 061
     Dates: start: 20120909, end: 20120913
  2. RETINOL [Suspect]
     Indication: WRINKLES
     Dosage: less than pea, 1xday,topical
     Route: 061
     Dates: start: 20120909, end: 20120913
  3. LEVOXYL [Concomitant]
  4. VITAMIN D [Concomitant]

REACTIONS (4)
  - Headache [None]
  - Nausea [None]
  - Hypopnoea [None]
  - Lethargy [None]
